FAERS Safety Report 17919754 (Version 1)
Quarter: 2020Q2

REPORT INFORMATION
  Report Type: Not Available
  Country: US (occurrence: US)
  Receive Date: 20200619
  Receipt Date: 20200619
  Transmission Date: 20200714
  Serious: No
  Sender: FDA-Public Use
  Company Number: US-C B FLEET CO INC-201907-US-002351

PATIENT

DRUGS (1)
  1. NIX COMPLETE MAXIMUM STRENGTH LICE ELIMINATION [Suspect]
     Active Substance: PERMETHRIN
     Indication: LICE INFESTATION
     Dosage: USED ONE APPLICATION ON 16-JUL-2019 AND SECOND APPLICATION ON 23-JUL-2019
     Route: 061
     Dates: start: 20190716, end: 20190723

REACTIONS (1)
  - Drug ineffective [Not Recovered/Not Resolved]
